FAERS Safety Report 8426250-5 (Version None)
Quarter: 2012Q2

REPORT INFORMATION
  Report Type: 
  Country: None (occurrence: None)
  Receive Date: 20120323
  Receipt Date: 20110602
  Transmission Date: 20120825
  Serious: Yes (Other)
  Sender: FDA-Public Use
  Company Number: 163-21880-11043215

PATIENT
  Age: 77 Year
  Sex: Male
  Weight: 63.5 kg

DRUGS (2)
  1. REVLIMID [Suspect]
     Indication: MULTIPLE MYELOMA
     Dosage: 10 MG, DAILY FOR 14 DAYS OF 21 DAYS, PO ; 10 MG, DAILY FOR 14 DAYS OF 21 DAYS, PO
     Route: 048
     Dates: start: 20100915, end: 20101101
  2. REVLIMID [Suspect]
     Indication: MULTIPLE MYELOMA
     Dosage: 10 MG, DAILY FOR 14 DAYS OF 21 DAYS, PO ; 10 MG, DAILY FOR 14 DAYS OF 21 DAYS, PO
     Route: 048
     Dates: start: 20061222, end: 20090624

REACTIONS (1)
  - CORONARY ARTERY DISEASE [None]
